FAERS Safety Report 14707158 (Version 5)
Quarter: 2018Q2

REPORT INFORMATION
  Report Type: Spontaneous
  Country: IL (occurrence: IL)
  Receive Date: 20180403
  Receipt Date: 20180524
  Transmission Date: 20180711
  Serious: Yes (Death, Hospitalization)
  Sender: FDA-Public Use
  Company Number: IL-ROCHE-2086835

PATIENT
  Age: 73 Year
  Sex: Female

DRUGS (7)
  1. TECENTRIQ [Suspect]
     Active Substance: ATEZOLIZUMAB
     Indication: LUNG ADENOCARCINOMA
     Route: 042
     Dates: start: 20180212
  2. COTELLIC [Suspect]
     Active Substance: COBIMETINIB
     Indication: LUNG ADENOCARCINOMA
     Route: 065
     Dates: start: 20180313, end: 201804
  3. FOLIC ACID. [Concomitant]
     Active Substance: FOLIC ACID
  4. ELIQUIS [Concomitant]
     Active Substance: APIXABAN
  5. INSULIN [Concomitant]
     Active Substance: INSULIN NOS
  6. RYTMONORM [Concomitant]
     Active Substance: PROPAFENONE
  7. SIMVASTATIN. [Concomitant]
     Active Substance: SIMVASTATIN

REACTIONS (10)
  - Dyspnoea [Recovering/Resolving]
  - Hypoglycaemia [Unknown]
  - Hypokalaemia [Unknown]
  - Asthenia [Not Recovered/Not Resolved]
  - Nausea [Unknown]
  - Infection [Unknown]
  - Decreased appetite [Unknown]
  - Dizziness [Recovering/Resolving]
  - Fatigue [Not Recovered/Not Resolved]
  - Oxygen saturation decreased [Recovering/Resolving]

NARRATIVE: CASE EVENT DATE: 20180306
